FAERS Safety Report 4413898-8 (Version None)
Quarter: 2004Q3

REPORT INFORMATION
  Report Type: 
  Country: None (occurrence: None)
  Receive Date: 20040728
  Receipt Date: 20040716
  Transmission Date: 20050211
  Serious: Yes (Hospitalization)
  Sender: FDA-Public Use
  Company Number: 2004046641

PATIENT
  Age: 74 Year
  Sex: Female

DRUGS (3)
  1. DOXAZOSIN (DOXAZOSIN) [Suspect]
     Indication: HYPERTENSION
     Dosage: 4 MG (4 MG, 1 IN 1 D), ORAL
     Route: 048
     Dates: start: 20040601
  2. ESTRIOL (ESTRIOL) [Concomitant]
  3. CO-PROXAMOL (DETROPROPOXYPHENE HYDROCHLORIDE, PARACETAMOL) [Concomitant]

REACTIONS (3)
  - JOINT SWELLING [None]
  - PHARMACEUTICAL PRODUCT COMPLAINT [None]
  - RASH [None]
